FAERS Safety Report 9744016 (Version 1)
Quarter: 2013Q4

REPORT INFORMATION
  Report Type: Spontaneous
  Country: US (occurrence: US)
  Receive Date: 20131210
  Receipt Date: 20131210
  Transmission Date: 20140711
  Serious: Yes (Other)
  Sender: FDA-Public Use
  Company Number: US-PFIZER INC-2013350518

PATIENT
  Age: 50 Year
  Sex: Male
  Weight: 65.76 kg

DRUGS (1)
  1. CELEBREX [Suspect]
     Indication: ARTHRITIS
     Dosage: 200 MG, 2X/DAY
     Route: 048
     Dates: start: 201202

REACTIONS (4)
  - Intervertebral disc degeneration [Unknown]
  - Spinal cord compression [Unknown]
  - Intervertebral disc protrusion [Unknown]
  - Vascular compression [Unknown]
